FAERS Safety Report 8326548-5 (Version None)
Quarter: 2012Q2

REPORT INFORMATION
  Report Type: 
  Country: None (occurrence: None)
  Receive Date: 20120501
  Receipt Date: 20110617
  Transmission Date: 20120825
  Serious: No
  Sender: FDA-Public Use
  Company Number: US-SANOFI-AVENTIS-2011SA038973

PATIENT
  Age: 55 Year
  Sex: Male
  Weight: 118 kg

DRUGS (4)
  1. APIDRA [Suspect]
     Dosage: 20-60 UNITS
     Route: 058
     Dates: start: 20110420, end: 20110610
  2. LANTUS [Suspect]
     Dosage: 70/ 50 UNITS IN THE EVENING.
     Route: 058
  3. METFORMIN HCL [Concomitant]
     Dosage: 2 X 500MG IN THE MORNING AND 3 X 500MG IN THE EVENING STARTED ABOUT IN 2004.
  4. SOLOSTAR [Suspect]

REACTIONS (2)
  - OEDEMA PERIPHERAL [None]
  - BLOOD GLUCOSE INCREASED [None]
